FAERS Safety Report 18510915 (Version 3)
Quarter: 2021Q3

REPORT INFORMATION
  Report Type: Spontaneous
  Country: JP (occurrence: JP)
  Receive Date: 20201117
  Receipt Date: 20210724
  Transmission Date: 20211014
  Serious: Yes (Hospitalization, Other)
  Sender: FDA-Public Use
  Company Number: JP-JNJFOC-20201031214

PATIENT
  Age: 68 Year
  Sex: Male

DRUGS (7)
  1. EPALRESTAT [Concomitant]
     Active Substance: EPALRESTAT
     Indication: DIABETIC NEUROPATHY
     Dosage: 50 MILLIGRAM, TID
     Route: 048
     Dates: end: 20200913
  2. CANAGLIFLOZIN [Suspect]
     Active Substance: CANAGLIFLOZIN
     Indication: TYPE 2 DIABETES MELLITUS
     Dosage: 100 MILLIGRAM, QD
     Route: 048
     Dates: end: 20200913
  3. MEXILETINE HYDROCHLORIDE. [Concomitant]
     Active Substance: MEXILETINE HYDROCHLORIDE
     Indication: DIABETIC NEUROPATHY
     Dosage: 100 MILLIGRAM, BID
     Route: 048
     Dates: end: 20200913
  4. PIOGLITAZONE. [Concomitant]
     Active Substance: PIOGLITAZONE
     Indication: TYPE 2 DIABETES MELLITUS
     Dosage: 15 MILLIGRAM, QD
     Route: 048
     Dates: end: 20200913
  5. TENELIA TABLETS 20MG [Concomitant]
     Active Substance: TENELIGLIPTIN
     Indication: TYPE 2 DIABETES MELLITUS
     Dosage: 20 MILLIGRAM, QD
     Route: 048
     Dates: start: 20200902, end: 20200913
  6. METFORMIN HYDROCHLORIDE. [Concomitant]
     Active Substance: METFORMIN HYDROCHLORIDE
     Indication: TYPE 2 DIABETES MELLITUS
     Dosage: 500 MILLIGRAM, BID
     Route: 048
     Dates: start: 20200908, end: 20200913
  7. MIGLITOL. [Concomitant]
     Active Substance: MIGLITOL
     Indication: TYPE 2 DIABETES MELLITUS
     Dosage: 50 MILLIGRAM, TID
     Route: 048
     Dates: end: 20200908

REACTIONS (3)
  - Myocardial infarction [Recovering/Resolving]
  - Euglycaemic diabetic ketoacidosis [Recovering/Resolving]
  - Brain stem infarction [Recovered/Resolved with Sequelae]

NARRATIVE: CASE EVENT DATE: 20200814
